FAERS Safety Report 25865871 (Version 1)
Quarter: 2025Q3

REPORT INFORMATION
  Report Type: Spontaneous
  Country: US (occurrence: US)
  Receive Date: 20250930
  Receipt Date: 20250930
  Transmission Date: 20251020
  Serious: No
  Sender: MALLINCKRODT
  Company Number: US-MALLINCKRODT-MNK202505922

PATIENT
  Sex: Female

DRUGS (17)
  1. CORTICOTROPIN [Suspect]
     Active Substance: CORTICOTROPIN
     Indication: Sarcoidosis
     Route: 058
  2. ALBUTEROL SULFATE [Concomitant]
     Active Substance: ALBUTEROL SULFATE
  3. ALPHAGAN P [Concomitant]
     Active Substance: BRIMONIDINE TARTRATE
  4. AZELASTINE FORCE [Concomitant]
  5. CARVEDILOL [Concomitant]
     Active Substance: CARVEDILOL
  6. ESCITALOPRAM [Concomitant]
     Active Substance: ESCITALOPRAM OXALATE
  7. FLUTICASONE [Concomitant]
     Active Substance: FLUTICASONE
  8. FOLIC ACID [Concomitant]
     Active Substance: FOLIC ACID
  9. LAMOTRIGINE [Concomitant]
     Active Substance: LAMOTRIGINE
  10. LISINOPRIL [Concomitant]
     Active Substance: LISINOPRIL
  11. LUMIGAN [Concomitant]
     Active Substance: BIMATOPROST
  12. NORVASC [Concomitant]
     Active Substance: AMLODIPINE BESYLATE
  13. PANTOPRAZOLE [Concomitant]
     Active Substance: PANTOPRAZOLE
  14. PREDNISONE [Concomitant]
     Active Substance: PREDNISONE
  15. SIMVASTATIN [Concomitant]
     Active Substance: SIMVASTATIN
  16. SUCRALFATE [Concomitant]
     Active Substance: SUCRALFATE
  17. TRELEGY ELLIPTA [Concomitant]
     Active Substance: FLUTICASONE FUROATE\UMECLIDINIUM BROMIDE\VILANTEROL TRIFENATATE

REACTIONS (3)
  - Nervousness [Not Recovered/Not Resolved]
  - Insomnia [Not Recovered/Not Resolved]
  - Fatigue [Not Recovered/Not Resolved]
